FAERS Safety Report 19821784 (Version 1)
Quarter: 2021Q3

REPORT INFORMATION
  Report Type: Spontaneous
  Country: US (occurrence: US)
  Receive Date: 20210913
  Receipt Date: 20210913
  Transmission Date: 20211014
  Serious: No
  Sender: FDA-Public Use
  Company Number: None

PATIENT
  Age: 79 Year
  Sex: Female

DRUGS (5)
  1. LISINOPRIL AND HYDROCHLOROTHIAZIDE [Concomitant]
     Active Substance: HYDROCHLOROTHIAZIDE\LISINOPRIL
  2. MULTIVITAMIN [Concomitant]
     Active Substance: VITAMINS
  3. SPRYCEL [Suspect]
     Active Substance: DASATINIB
     Indication: MYELOID LEUKAEMIA
     Route: 048
     Dates: start: 20210408
  4. FUROSEMIDE. [Concomitant]
     Active Substance: FUROSEMIDE
  5. PROCHLORPERAZINE. [Concomitant]
     Active Substance: PROCHLORPERAZINE

REACTIONS (4)
  - Constipation [None]
  - Fatigue [None]
  - Diarrhoea [None]
  - Back pain [None]

NARRATIVE: CASE EVENT DATE: 20210913
